FAERS Safety Report 10556768 (Version 2)
Quarter: 2014Q4

REPORT INFORMATION
  Report Type: Spontaneous
  Country: AR (occurrence: AR)
  Receive Date: 20141031
  Receipt Date: 20141201
  Transmission Date: 20150529
  Serious: No
  Sender: FDA-Public Use
  Company Number: CHPA2014AR014571

PATIENT
  Age: 33 Year
  Sex: Female

DRUGS (4)
  1. NICOTINELL [Suspect]
     Active Substance: NICOTINE
     Indication: SMOKING CESSATION THERAPY
     Dosage: 12 DF, QD
     Route: 065
     Dates: start: 201401
  2. NICOTINELL [Suspect]
     Active Substance: NICOTINE
     Dosage: 24 GUM LASTED 3 DAYS
     Route: 065
  3. CLONAZEPAM. [Concomitant]
     Active Substance: CLONAZEPAM
     Indication: INSOMNIA
     Dosage: UNK
     Route: 065
  4. T4 [Concomitant]
     Active Substance: LEVOTHYROXINE
     Indication: THYROID DISORDER
     Dosage: UNK
     Route: 065

REACTIONS (4)
  - Feeling of despair [Unknown]
  - Anxiety [Recovering/Resolving]
  - Agitation [Recovering/Resolving]
  - Incorrect dose administered [Unknown]

NARRATIVE: CASE EVENT DATE: 201406
